FAERS Safety Report 13870829 (Version 3)
Quarter: 2018Q1

REPORT INFORMATION
  Report Type: Spontaneous
  Country: US (occurrence: US)
  Receive Date: 20170816
  Receipt Date: 20180105
  Transmission Date: 20180508
  Serious: No
  Sender: FDA-Public Use
  Company Number: US-ASTRAZENECA-2017SE81639

PATIENT
  Age: 59 Year
  Sex: Male
  Weight: 77.1 kg

DRUGS (7)
  1. NAPROSYN [Concomitant]
     Active Substance: NAPROXEN
     Indication: RETINOPATHY
     Dosage: 500.0MG AS REQUIRED
     Route: 048
     Dates: start: 1997
  2. IPRATROPIUM BROMIDE. [Concomitant]
     Active Substance: IPRATROPIUM BROMIDE
     Dosage: .03 TWO PUFFS TWICE A DAY
     Route: 055
  3. GENERIC CLARITEN 24 HR [Concomitant]
     Dosage: DAILY
     Route: 048
  4. MULTIVITAMIN [Concomitant]
     Active Substance: VITAMINS
     Route: 048
  5. SYMBICORT [Suspect]
     Active Substance: BUDESONIDE\FORMOTEROL FUMARATE DIHYDRATE
     Indication: ASTHMA
     Dosage: 160-4.5 TWO PUFFS TWICE A DAY
     Route: 055
  6. FLONASE [Concomitant]
     Active Substance: FLUTICASONE PROPIONATE
     Dosage: 50MCG TWO PUFFS TWICE A DAY
     Route: 045
  7. NAPROSYN [Concomitant]
     Active Substance: NAPROXEN
     Indication: PRODUCTIVE COUGH
     Dosage: 500.0MG AS REQUIRED
     Route: 048
     Dates: start: 1997

REACTIONS (14)
  - Nasal congestion [Not Recovered/Not Resolved]
  - Sensory disturbance [Unknown]
  - Product quality issue [Unknown]
  - Product use issue [Unknown]
  - Throat clearing [Not Recovered/Not Resolved]
  - Off label use [Not Recovered/Not Resolved]
  - Ear disorder [Unknown]
  - Sneezing [Unknown]
  - Drug dose omission [Not Recovered/Not Resolved]
  - Dysphonia [Not Recovered/Not Resolved]
  - Ear pain [Unknown]
  - Dyspepsia [Unknown]
  - Intentional product misuse [Not Recovered/Not Resolved]
  - Productive cough [Not Recovered/Not Resolved]

NARRATIVE: CASE EVENT DATE: 2013
